FAERS Safety Report 5847029-4 (Version None)
Quarter: 2008Q3

REPORT INFORMATION
  Report Type: 
  Country: None (occurrence: None)
  Receive Date: 20080815
  Receipt Date: 20080804
  Transmission Date: 20090109
  Serious: Yes (Other)
  Sender: FDA-Public Use
  Company Number: US-PFIZER INC-2008065779

PATIENT
  Sex: Female
  Weight: 54.4 kg

DRUGS (6)
  1. XALATAN [Suspect]
     Indication: GLAUCOMA
     Route: 047
  2. ARMOUR THYROID [Concomitant]
  3. CALCIUM [Concomitant]
  4. VITAMIN D [Concomitant]
  5. ASCORBIC ACID [Concomitant]
  6. GENTEAL [Concomitant]

REACTIONS (5)
  - EYE PAIN [None]
  - LIVER DISORDER [None]
  - OCULAR HYPERAEMIA [None]
  - OCULAR ICTERUS [None]
  - YELLOW SKIN [None]
